FAERS Safety Report 7138024-6 (Version None)
Quarter: 2010Q4

REPORT INFORMATION
  Report Type: 
  Country: None (occurrence: None)
  Receive Date: 20101118
  Receipt Date: 20101104
  Transmission Date: 20110411
  Serious: Yes (Disabling)
  Sender: FDA-Public Use
  Company Number: DSM-2010-01637

PATIENT
  Age: 56 Year
  Sex: Male

DRUGS (1)
  1. ZOLNOR (OLMESARTAN MEDOXOMIL, AMLODIPINE BESILATE) (TABLET) (OLMESARTA [Suspect]
     Indication: HYPERTENSION
     Dosage: ORAL
     Route: 048
     Dates: start: 20101020, end: 20101025

REACTIONS (1)
  - ERECTILE DYSFUNCTION [None]
